FAERS Safety Report 8501841-1 (Version None)
Quarter: 2012Q2

REPORT INFORMATION
  Report Type: 
  Country: None (occurrence: None)
  Receive Date: 20120405
  Receipt Date: 20100812
  Transmission Date: 20120825
  Serious: Yes (Disabling)
  Sender: FDA-Public Use
  Company Number: PHHY2010US49433

PATIENT
  Age: 83 Year
  Sex: Female

DRUGS (4)
  1. ACIPHEX [Concomitant]
  2. AZACTAM (ARGININE, AZTREONAM) [Concomitant]
  3. RECLAST [Suspect]
     Indication: OSTEOPOROSIS
     Dosage: 4  MG, INFUSION
     Dates: start: 20080617
  4. KEPPRA [Concomitant]

REACTIONS (2)
  - ARTHRALGIA [None]
  - MYALGIA [None]
